FAERS Safety Report 24040138 (Version 2)
Quarter: 2025Q2

REPORT INFORMATION
  Report Type: Spontaneous
  Country: US (occurrence: US)
  Receive Date: 20240702
  Receipt Date: 20250517
  Transmission Date: 20250717
  Serious: Yes (Other)
  Sender: AUROBINDO
  Company Number: US-AUROBINDO-AUR-APL-2024-031768

PATIENT
  Age: 31 Year
  Sex: Female

DRUGS (13)
  1. ERTAPENEM [Suspect]
     Active Substance: ERTAPENEM
     Indication: Burkholderia cepacia complex infection
     Route: 065
  2. ERTAPENEM [Suspect]
     Active Substance: ERTAPENEM
     Indication: Neisseria infection
  3. ERTAPENEM [Suspect]
     Active Substance: ERTAPENEM
     Indication: Infection
  4. MEROPENEM [Suspect]
     Active Substance: MEROPENEM
     Indication: Burkholderia cepacia complex infection
     Route: 065
  5. MEROPENEM [Suspect]
     Active Substance: MEROPENEM
     Indication: Staphylococcal infection
  6. MEROPENEM [Suspect]
     Active Substance: MEROPENEM
     Indication: Infection
  7. MOXIFLOXACIN [Suspect]
     Active Substance: MOXIFLOXACIN
     Indication: Burkholderia cepacia complex infection
     Route: 065
  8. MOXIFLOXACIN [Suspect]
     Active Substance: MOXIFLOXACIN
     Indication: Staphylococcal infection
  9. MOXIFLOXACIN [Suspect]
     Active Substance: MOXIFLOXACIN
     Indication: Infection
  10. CEFIDEROCOL [Suspect]
     Active Substance: CEFIDEROCOL
     Indication: Burkholderia cepacia complex infection
     Route: 065
  11. CEFIDEROCOL [Suspect]
     Active Substance: CEFIDEROCOL
     Indication: Neisseria infection
  12. CEFIDEROCOL [Suspect]
     Active Substance: CEFIDEROCOL
     Indication: Infection
  13. TRIKAFTA [Suspect]
     Active Substance: ELEXACAFTOR\IVACAFTOR\TEZACAFTOR
     Indication: Drug therapy
     Route: 065

REACTIONS (1)
  - Drug ineffective [Unknown]
